FAERS Safety Report 22241992 (Version 1)
Quarter: 2023Q2

REPORT INFORMATION
  Report Type: Report from Study
  Country: EG (occurrence: EG)
  Receive Date: 20230421
  Receipt Date: 20230421
  Transmission Date: 20230722
  Serious: Yes (Death, Hospitalization, Other)
  Sender: FDA-Public Use
  Company Number: EG-002147023-NVSC2023EG091408

PATIENT
  Age: 81 Year
  Sex: Male

DRUGS (1)
  1. ELTROMBOPAG OLAMINE [Suspect]
     Active Substance: ELTROMBOPAG OLAMINE
     Indication: Product used for unknown indication
     Dosage: 25 MG (ONLY TOOK 2 TABLETS AT THE END OF HIS HOSPITAL STAY)
     Route: 048

REACTIONS (4)
  - Hepatic fibrosis [Fatal]
  - Bacterial toxaemia [Fatal]
  - Hydronephrosis [Fatal]
  - Renal failure [Fatal]

NARRATIVE: CASE EVENT DATE: 20221202
